FAERS Safety Report 7738277-7 (Version None)
Quarter: 2011Q3

REPORT INFORMATION
  Report Type: 
  Country: None (occurrence: None)
  Receive Date: 20110908
  Receipt Date: 20110831
  Transmission Date: 20111222
  Serious: Yes (Hospitalization, Other)
  Sender: FDA-Public Use
  Company Number: US-ACTELION-A-US2011-50918

PATIENT

DRUGS (4)
  1. REVATIO [Concomitant]
  2. TRACLEER [Suspect]
     Indication: PULMONARY ARTERIAL HYPERTENSION
     Dosage: UNK
     Route: 048
     Dates: start: 20090609
  3. ASPIRIN [Concomitant]
  4. COUMADIN [Concomitant]

REACTIONS (5)
  - DYSPNOEA [None]
  - DIZZINESS [None]
  - CHEST PAIN [None]
  - HEADACHE [None]
  - NECK PAIN [None]
